FAERS Safety Report 23789098 (Version 2)
Quarter: 2024Q2

REPORT INFORMATION
  Report Type: Report from Study
  Country: US (occurrence: US)
  Receive Date: 20240426
  Receipt Date: 20240510
  Transmission Date: 20240716
  Serious: Yes (Other)
  Sender: FDA-Public Use
  Company Number: US-ARGENX-2024-ARGX-US001167

PATIENT

DRUGS (1)
  1. VYVGART [Suspect]
     Active Substance: EFGARTIGIMOD ALFA-FCAB
     Indication: Myasthenia gravis
     Dosage: UNK, 1/WEEK. FOR 4 WEEKS, THEN OFF FOR 4 WEEKS
     Route: 042
     Dates: start: 202204

REACTIONS (7)
  - Myasthenia gravis [Unknown]
  - Muscle spasms [Unknown]
  - Mastication disorder [Unknown]
  - Nocturia [Unknown]
  - Muscle spasms [Unknown]
  - Fatigue [Unknown]
  - Balance disorder [Unknown]
